FAERS Safety Report 15872836 (Version 1)
Quarter: 2019Q1

REPORT INFORMATION
  Report Type: Other
  Country: US (occurrence: US)
  Receive Date: 20190126
  Receipt Date: 20190126
  Transmission Date: 20190417
  Serious: No
  Sender: FDA-Public Use
  Company Number: US-ACORDA-ACO_149377_2018

PATIENT
  Sex: Female

DRUGS (1)
  1. AMPYRA [Suspect]
     Active Substance: DALFAMPRIDINE
     Indication: MULTIPLE SCLEROSIS
     Dosage: 10 MG, Q 12 HRS
     Route: 065
     Dates: start: 20180219, end: 20180413

REACTIONS (4)
  - Aphasia [Not Recovered/Not Resolved]
  - Lethargy [Recovering/Resolving]
  - Depressed mood [Recovering/Resolving]
  - Urinary tract infection [Recovering/Resolving]
